FAERS Safety Report 24193065 (Version 1)
Quarter: 2024Q3

REPORT INFORMATION
  Report Type: Spontaneous
  Country: US (occurrence: US)
  Receive Date: 20240809
  Receipt Date: 20240809
  Transmission Date: 20241016
  Serious: No
  Sender: ABBVIE
  Company Number: US-ABBVIE-5865101

PATIENT
  Sex: Female

DRUGS (7)
  1. RINVOQ [Suspect]
     Active Substance: UPADACITINIB
     Indication: Product used for unknown indication
     Route: 048
  2. XELJANZ XR [Suspect]
     Active Substance: TOFACITINIB CITRATE
     Indication: Rheumatoid arthritis
     Dosage: TAKE ONE TABLET BY MOUTH EVERY DAY?FORM STRENGTH: 11 MILLIGRAM
     Route: 048
     Dates: start: 20210210
  3. ACTEMRA [Concomitant]
     Active Substance: TOCILIZUMAB
     Indication: Product used for unknown indication
     Route: 065
  4. CIMZIA [Concomitant]
     Active Substance: CERTOLIZUMAB PEGOL
     Indication: Product used for unknown indication
     Dosage: DOSAGE: 200 MG/ML (1= 2  INJECTION SYRINGE)
     Route: 065
  5. CIMZIA [Concomitant]
     Active Substance: CERTOLIZUMAB PEGOL
     Indication: Product used for unknown indication
     Dosage: DOSAGE: 200 MG/ML (3= 6  INJECTION SYRINGE)
     Route: 065
  6. KEVZARA [Concomitant]
     Active Substance: SARILUMAB
     Indication: Product used for unknown indication
     Dosage: 200/1.14
     Route: 065
  7. OLUMIANT [Concomitant]
     Active Substance: BARICITINIB
     Indication: Product used for unknown indication
     Route: 065

REACTIONS (4)
  - Arthralgia [Not Recovered/Not Resolved]
  - Headache [Not Recovered/Not Resolved]
  - Pain [Not Recovered/Not Resolved]
  - Loss of personal independence in daily activities [Not Recovered/Not Resolved]
